FAERS Safety Report 9325832 (Version 1)
Quarter: 2013Q2

REPORT INFORMATION
  Report Type: Spontaneous
  Country: IT (occurrence: IT)
  Receive Date: 20130604
  Receipt Date: 20130604
  Transmission Date: 20140414
  Serious: Yes (Other)
  Sender: FDA-Public Use
  Company Number: IT-JNJFOC-20130518500

PATIENT
  Age: 68 Year
  Sex: Female

DRUGS (5)
  1. DOXORUBICIN HYDROCHLORIDE (CAELYX) [Suspect]
     Indication: OVARIAN CANCER
     Route: 042
     Dates: start: 20130121, end: 20130408
  2. CARBOPLATINUM [Suspect]
     Indication: OVARIAN CANCER
     Route: 042
     Dates: start: 20130121, end: 20130408
  3. SOLDESAM [Concomitant]
     Indication: OVARIAN CANCER
     Route: 042
     Dates: start: 20130121, end: 20130408
  4. RANIDIL [Concomitant]
     Indication: PRODUCT USED FOR UNKNOWN INDICATION
     Route: 042
     Dates: start: 20130121, end: 20130408
  5. ONDANSETRON [Concomitant]
     Indication: PRODUCT USED FOR UNKNOWN INDICATION
     Route: 042
     Dates: start: 20130121, end: 20130408

REACTIONS (4)
  - Abdominal pain [Recovering/Resolving]
  - Paraesthesia [Recovering/Resolving]
  - Constipation [Recovering/Resolving]
  - Muscular weakness [Recovering/Resolving]
